FAERS Safety Report 7433753-9 (Version None)
Quarter: 2011Q2

REPORT INFORMATION
  Report Type: 
  Country: None (occurrence: None)
  Receive Date: 20110424
  Receipt Date: 20110413
  Transmission Date: 20111010
  Serious: No
  Sender: FDA-Public Use
  Company Number: US-ROXANE LABORATORIES, INC.-2011-RO-00530RO

PATIENT
  Sex: Female

DRUGS (1)
  1. MEPERIDINE [Suspect]
     Indication: COMPLEX REGIONAL PAIN SYNDROME
     Route: 048
     Dates: start: 20091201

REACTIONS (1)
  - URINARY INCONTINENCE [None]
